FAERS Safety Report 5520531-0 (Version None)
Quarter: 2007Q4

REPORT INFORMATION
  Report Type: 
  Country: None (occurrence: None)
  Receive Date: 20071119
  Receipt Date: 20071111
  Transmission Date: 20080405
  Serious: Yes (Hospitalization)
  Sender: FDA-Public Use
  Company Number: IR-JNJFOC-20071104326

PATIENT
  Age: 47 Year
  Sex: Male
  Weight: 80 kg

DRUGS (6)
  1. REMICADE [Suspect]
     Dosage: 4 VIALS.
  2. REMICADE [Suspect]
     Dosage: 3 VIALS.
  3. REMICADE [Suspect]
     Dosage: 2 VIALS
  4. REMICADE [Suspect]
     Indication: PUSTULAR PSORIASIS
     Dosage: 2 VIALS
  5. PREDNISOLONE [Concomitant]
     Indication: PSORIASIS
  6. CYCLOSPORINE [Concomitant]

REACTIONS (5)
  - CONDITION AGGRAVATED [None]
  - DERMATITIS EXFOLIATIVE [None]
  - PUSTULAR PSORIASIS [None]
  - RED BLOOD CELL SEDIMENTATION RATE INCREASED [None]
  - WHITE BLOOD CELL COUNT INCREASED [None]
